FAERS Safety Report 8452293-1 (Version None)
Quarter: 2012Q2

REPORT INFORMATION
  Report Type: 
  Country: None (occurrence: None)
  Receive Date: 20120620
  Receipt Date: 20120608
  Transmission Date: 20120825
  Serious: Yes (Hospitalization, Other)
  Sender: FDA-Public Use
  Company Number: US-ELI_LILLY_AND_COMPANY-US201010001746

PATIENT
  Sex: Female

DRUGS (5)
  1. FORTEO [Suspect]
     Indication: OSTEOPOROSIS
     Dosage: 20 UG, DAILY (1/D)
     Route: 058
     Dates: start: 20100921
  2. FORTEO [Suspect]
     Dosage: 20 UG, DAILY (1/D)
     Route: 058
  3. FORTEO [Suspect]
     Dosage: 20 UG, QD
     Route: 058
  4. SYNTHROID [Concomitant]
     Indication: BLOOD THYROID STIMULATING HORMONE
  5. FORTEO [Suspect]
     Dosage: 20 UG, QD
     Route: 058

REACTIONS (11)
  - OROPHARYNGEAL PAIN [None]
  - BLOOD CALCIUM INCREASED [None]
  - PAIN IN EXTREMITY [None]
  - APHASIA [None]
  - FALL [None]
  - UPPER LIMB FRACTURE [None]
  - LUNG NEOPLASM MALIGNANT [None]
  - COUGH [None]
  - DEVICE DISLOCATION [None]
  - DYSPHONIA [None]
  - PNEUMONIA [None]
